FAERS Safety Report 21303317 (Version 1)
Quarter: 2022Q3

REPORT INFORMATION
  Report Type: Spontaneous
  Country: US (occurrence: None)
  Receive Date: 20220907
  Receipt Date: 20220907
  Transmission Date: 20221027
  Serious: No
  Sender: FDA-Public Use
  Company Number: None

PATIENT
  Age: 69 Year
  Sex: Female
  Weight: 60.3 kg

DRUGS (6)
  1. RISEDRONATE SODIUM [Suspect]
     Active Substance: RISEDRONATE SODIUM
     Indication: Osteoporosis
     Dosage: OTHER QUANTITY : 1 TABLET(S);?OTHER FREQUENCY : ONCE A WEEK;?
     Route: 048
     Dates: start: 20220811, end: 20220823
  2. Hydorchlorothiazide 12.5 mg for hypercalciuria [Concomitant]
  3. folic acid (FolaPro) 1mg 4-5 times a day po [Concomitant]
  4. Vitamin D 1,000 units po daily [Concomitant]
  5. Citracal maximum plus 1 tab 2x day [Concomitant]
  6. Centrum silver for women 50+ 1 tab po daily [Concomitant]

REACTIONS (13)
  - Arthralgia [None]
  - Bone pain [None]
  - Musculoskeletal chest pain [None]
  - Chest discomfort [None]
  - Muscle spasms [None]
  - Dyspnoea [None]
  - Joint range of motion decreased [None]
  - Sitting disability [None]
  - Impaired driving ability [None]
  - Pain [None]
  - Eructation [None]
  - Dyspepsia [None]
  - Spinal pain [None]

NARRATIVE: CASE EVENT DATE: 20220820
